FAERS Safety Report 8799669 (Version 3)
Quarter: 2013Q1

REPORT INFORMATION
  Report Type: Spontaneous
  Country: US (occurrence: None)
  Receive Date: 20120914
  Receipt Date: 20121026
  Transmission Date: 20140127
  Serious: Yes (Hospitalization)
  Sender: FDA-Public Use
  Company Number: AUR-APL-2012-03830

PATIENT
  Age: 52 Year
  Sex: 0

DRUGS (1)
  1. NAPROXEN (NAPROXEN) [Suspect]
     Indication: OSTEOARTHRITIS
     Route: 048
     Dates: start: 20120801, end: 20120815

REACTIONS (4)
  - Swelling face [None]
  - Eyelid oedema [None]
  - Eczema infected [None]
  - Photosensitivity reaction [None]
